FAERS Safety Report 12930516 (Version 1)
Quarter: 2016Q4

REPORT INFORMATION
  Report Type: Spontaneous
  Country: SI (occurrence: SI)
  Receive Date: 20161110
  Receipt Date: 20161110
  Transmission Date: 20170207
  Serious: Yes (Other)
  Sender: FDA-Public Use
  Company Number: SI-JNJFOC-20161108327

PATIENT
  Age: 66 Year
  Sex: Female

DRUGS (1)
  1. IMBRUVICA [Suspect]
     Active Substance: IBRUTINIB
     Indication: CHRONIC LYMPHOCYTIC LEUKAEMIA
     Route: 048
     Dates: start: 20151028

REACTIONS (3)
  - Hypertension [Recovering/Resolving]
  - Aphthous ulcer [Recovering/Resolving]
  - Blood cholesterol increased [Recovering/Resolving]
